FAERS Safety Report 8606143-0 (Version None)
Quarter: 2012Q3

REPORT INFORMATION
  Report Type: 
  Country: None (occurrence: None)
  Receive Date: 20120820
  Receipt Date: 19950413
  Transmission Date: 20120928
  Serious: Yes (Death, Other)
  Sender: FDA-Public Use
  Company Number: US-ROCHE-1101872

PATIENT
  Age: 43 Year
  Sex: Male

DRUGS (5)
  1. VALIUM [Concomitant]
     Route: 042
  2. LIDOCAINE [Concomitant]
  3. ACTIVASE [Suspect]
     Indication: ACUTE MYOCARDIAL INFARCTION
  4. HEPARIN [Concomitant]
     Dosage: 1000 UNITS
  5. TRIDIL [Concomitant]

REACTIONS (4)
  - GINGIVAL BLEEDING [None]
  - DEATH [None]
  - VENTRICULAR TACHYCARDIA [None]
  - TONGUE HAEMORRHAGE [None]
